FAERS Safety Report 23094551 (Version 2)
Quarter: 2023Q4

REPORT INFORMATION
  Report Type: Report from Study
  Country: US (occurrence: US)
  Receive Date: 20231023
  Receipt Date: 20231123
  Transmission Date: 20240110
  Serious: Yes (Other)
  Sender: FDA-Public Use
  Company Number: US-002147023-NVSC2023US224698

PATIENT
  Sex: Female

DRUGS (1)
  1. ENTRESTO [Suspect]
     Active Substance: SACUBITRIL\VALSARTAN
     Indication: Product used for unknown indication
     Dosage: 1 DOSAGE FORM, BID (24/26MG)
     Route: 048

REACTIONS (8)
  - Blood pressure increased [Unknown]
  - Fluid retention [Unknown]
  - Peripheral swelling [Unknown]
  - Abdominal distension [Unknown]
  - Product dose omission issue [Unknown]
  - Ocular discomfort [Unknown]
  - Hunger [Unknown]
  - Swelling [Unknown]
